FAERS Safety Report 7020871-2 (Version None)
Quarter: 2010Q3

REPORT INFORMATION
  Report Type: 
  Country: None (occurrence: None)
  Receive Date: 20100929
  Receipt Date: 20100924
  Transmission Date: 20110219
  Serious: Yes (Other)
  Sender: FDA-Public Use
  Company Number: JP-PFIZER INC-2010104896

PATIENT
  Age: 73 Year
  Sex: Male

DRUGS (2)
  1. CHAMPIX [Suspect]
     Indication: SMOKING CESSATION THERAPY
     Dosage: UNK
     Route: 048
     Dates: start: 20100810, end: 20100816
  2. CHAMPIX [Suspect]
     Dosage: 1 MG, 1X/DAY
     Route: 048
     Dates: start: 20100817, end: 20100818

REACTIONS (13)
  - ABDOMINAL DISCOMFORT [None]
  - BACK PAIN [None]
  - CHILLS [None]
  - CHROMATURIA [None]
  - DYSPNOEA [None]
  - FEELING COLD [None]
  - NOCTURIA [None]
  - PAIN IN EXTREMITY [None]
  - POLLAKIURIA [None]
  - PYREXIA [None]
  - RESTLESSNESS [None]
  - TREMOR [None]
  - URINE OUTPUT DECREASED [None]
